FAERS Safety Report 25621089 (Version 2)
Quarter: 2025Q3

REPORT INFORMATION
  Report Type: Report from Study
  Country: EU (occurrence: EU)
  Receive Date: 20250730
  Receipt Date: 20250903
  Transmission Date: 20251020
  Serious: Yes (Other)
  Sender: CELLTRION
  Company Number: EU-ABBVIE-6266634

PATIENT

DRUGS (5)
  1. ADALIMUMAB [Suspect]
     Active Substance: ADALIMUMAB
     Indication: Rheumatic disorder
     Route: 058
  2. ADALIMUMAB [Suspect]
     Active Substance: ADALIMUMAB
  3. SARS-COV-2 VACCINE [Concomitant]
     Indication: COVID-19
     Route: 065
  4. SARS-COV-2 VACCINE [Concomitant]
     Route: 065
  5. SARS-COV-2 VACCINE [Concomitant]
     Route: 065

REACTIONS (1)
  - Immunosuppression [Unknown]
